FAERS Safety Report 18259390 (Version 1)
Quarter: 2020Q3

REPORT INFORMATION
  Report Type: Report from Study
  Country: None (occurrence: US)
  Receive Date: 20200911
  Receipt Date: 20200911
  Transmission Date: 20201103
  Serious: Yes (Other)
  Sender: FDA-Public Use
  Company Number: US-ABBVIE-20K-163-3557395-00

PATIENT
  Sex: Female

DRUGS (2)
  1. PREDNISONE. [Suspect]
     Active Substance: PREDNISONE
     Indication: AORTIC DISORDER
     Route: 065
  2. HUMIRA [Suspect]
     Active Substance: ADALIMUMAB
     Indication: RHEUMATOID ARTHRITIS
     Dosage: CITRATE FREE
     Route: 058

REACTIONS (2)
  - Takayasu^s arteritis [Recovering/Resolving]
  - Aortic disorder [Unknown]

NARRATIVE: CASE EVENT DATE: 2017
